FAERS Safety Report 13677870 (Version 3)
Quarter: 2017Q3

REPORT INFORMATION
  Report Type: Spontaneous
  Country: JP (occurrence: JP)
  Receive Date: 20170622
  Receipt Date: 20170707
  Transmission Date: 20171127
  Serious: Yes (Other)
  Sender: FDA-Public Use
  Company Number: JP-VIFOR (INTERNATIONAL) INC.-VIT-2017-06820

PATIENT
  Age: 76 Year
  Sex: Male

DRUGS (9)
  1. CALONAL [Concomitant]
     Active Substance: ACETAMINOPHEN
     Route: 048
  2. VELPHORO [Suspect]
     Active Substance: FERRIC OXYHYDROXIDE
     Indication: HYPERPHOSPHATAEMIA
     Route: 048
     Dates: start: 20160401, end: 20161201
  3. BISOPROLOL FUMARATE. [Concomitant]
     Active Substance: BISOPROLOL FUMARATE
     Route: 048
  4. AZILVA [Concomitant]
     Active Substance: AZILSARTAN KAMEDOXOMIL
     Route: 048
  5. NIPOLAZIN [Concomitant]
     Route: 048
  6. LENDORMIN [Concomitant]
     Active Substance: BROTIZOLAM
     Route: 048
  7. PROTECADIN [Concomitant]
     Active Substance: LAFUTIDINE
     Route: 048
  8. ALOSENN [Concomitant]
     Active Substance: SENNA LEAF
     Route: 048
  9. VOLTAREN [Concomitant]
     Active Substance: DICLOFENAC SODIUM
     Route: 062

REACTIONS (3)
  - Faeces discoloured [Recovered/Resolved]
  - Gastrointestinal haemorrhage [Recovering/Resolving]
  - Occult blood [Unknown]

NARRATIVE: CASE EVENT DATE: 20160404
